FAERS Safety Report 4629511-0 (Version None)
Quarter: 2005Q2

REPORT INFORMATION
  Report Type: 
  Country: None (occurrence: None)
  Receive Date: 20050405
  Receipt Date: 20050324
  Transmission Date: 20051028
  Serious: Yes (Hospitalization)
  Sender: FDA-Public Use
  Company Number: 2005049746

PATIENT
  Age: 77 Year
  Sex: Female
  Weight: 73.9363 kg

DRUGS (4)
  1. NORVASC [Suspect]
     Indication: HYPERTENSION
     Dosage: (1 IN 24 HR), ORAL
     Route: 048
  2. LIPITOR [Suspect]
     Indication: BLOOD CHOLESTEROL INCREASED
     Dosage: (1 IN 24 HR), ORAL
     Route: 048
  3. MONTELUKAST SODIUM (MONTELUKAST SODIUM) [Concomitant]
  4. PREDNISONE [Concomitant]

REACTIONS (2)
  - MENTAL DISORDER [None]
  - PNEUMONIA [None]
